FAERS Safety Report 7834164-4 (Version None)
Quarter: 2011Q4

REPORT INFORMATION
  Report Type: 
  Country: None (occurrence: None)
  Receive Date: 20111024
  Receipt Date: 20111017
  Transmission Date: 20120403
  Serious: Yes (Hospitalization)
  Sender: FDA-Public Use
  Company Number: PHEH2011US05189

PATIENT
  Sex: Female
  Weight: 30 kg

DRUGS (9)
  1. PREDNISONE [Concomitant]
  2. TOBI [Suspect]
     Dosage: 300 MG, BID
     Dates: start: 20100424
  3. ACETYLCYSTEINE [Concomitant]
  4. VITAMIN D [Concomitant]
  5. AZITHROMYCIN [Concomitant]
  6. CREON [Concomitant]
  7. MIRALAX [Concomitant]
  8. ALBUTEROL [Concomitant]
  9. MEPHYTON [Concomitant]

REACTIONS (6)
  - LUNG INFECTION [None]
  - ABDOMINAL PAIN UPPER [None]
  - BACTERIAL TEST POSITIVE [None]
  - NAUSEA [None]
  - WEIGHT DECREASED [None]
  - CONSTIPATION [None]
